FAERS Safety Report 7860184-X (Version None)
Quarter: 2011Q4

REPORT INFORMATION
  Report Type: 
  Country: None (occurrence: None)
  Receive Date: 20111027
  Receipt Date: 20111025
  Transmission Date: 20120403
  Serious: No
  Sender: FDA-Public Use
  Company Number: US-TEVA-306111USA

PATIENT
  Sex: Female
  Weight: 68.1 kg

DRUGS (2)
  1. CLARITIN [Concomitant]
     Indication: SEASONAL ALLERGY
  2. PLAN B ONE-STEP [Suspect]
     Indication: POST COITAL CONTRACEPTION
     Dosage: 1.5 MILLIGRAM;
     Route: 048
     Dates: start: 20111005, end: 20111005

REACTIONS (4)
  - MOOD ALTERED [None]
  - ARTHRALGIA [None]
  - DYSMENORRHOEA [None]
  - MENSTRUATION IRREGULAR [None]
